FAERS Safety Report 5367951-5 (Version None)
Quarter: 2007Q2

REPORT INFORMATION
  Report Type: 
  Country: None (occurrence: None)
  Receive Date: 20070622
  Receipt Date: 20070608
  Transmission Date: 20071010
  Serious: Yes (Hospitalization)
  Sender: FDA-Public Use
  Company Number: US-SHR-US-2007-001503

PATIENT
  Age: 54 Year
  Sex: Female
  Weight: 49.887 kg

DRUGS (5)
  1. BETASERON [Suspect]
     Indication: RELAPSING-REMITTING MULTIPLE SCLEROSIS
     Dosage: 8 MIU, EVERY 2D
     Route: 058
     Dates: start: 20020627
  2. PROVIGIL [Concomitant]
     Dosage: 100 MG/D, UNK
  3. CLIMARA [Concomitant]
     Dosage: .06 MG, UNK
     Dates: start: 20040101
  4. AMBIEN [Concomitant]
     Dosage: UNK, BED T.
  5. MULTIVITAMIN [Concomitant]

REACTIONS (4)
  - ABDOMINAL ADHESIONS [None]
  - INTERNAL HERNIA [None]
  - INTESTINAL ISCHAEMIA [None]
  - PERITONITIS [None]
